FAERS Safety Report 6332704-8 (Version None)
Quarter: 2009Q3

REPORT INFORMATION
  Report Type: 
  Country: None (occurrence: None)
  Receive Date: 20090828
  Receipt Date: 20090826
  Transmission Date: 20100115
  Serious: Yes (Hospitalization)
  Sender: FDA-Public Use
  Company Number: GB-WYE-G04312509

PATIENT
  Age: 65 Year
  Sex: Female

DRUGS (1)
  1. ANADIN IBUPROFEN [Suspect]
     Dosage: UNKNOWN

REACTIONS (1)
  - SLEEP APNOEA SYNDROME [None]
